FAERS Safety Report 11176826 (Version 1)
Quarter: 2015Q2

REPORT INFORMATION
  Report Type: Spontaneous
  Country: JP (occurrence: JP)
  Receive Date: 20150610
  Receipt Date: 20150610
  Transmission Date: 20150821
  Serious: Yes (Other)
  Sender: FDA-Public Use
  Company Number: JP-CIPLA LTD.-2015JP04422

PATIENT

DRUGS (4)
  1. GEMCITABINE [Suspect]
     Active Substance: GEMCITABINE\GEMCITABINE HYDROCHLORIDE
     Indication: CLEAR CELL RENAL CELL CARCINOMA
  2. GEMCITABINE [Suspect]
     Active Substance: GEMCITABINE\GEMCITABINE HYDROCHLORIDE
     Indication: BILE DUCT CANCER
     Dosage: 750 MG/M2 ON DAYS 1 AND 8
     Route: 065
  3. SUNITINIB [Suspect]
     Active Substance: SUNITINIB
     Indication: BILE DUCT CANCER
     Dosage: 25 MG/DAY; DAYS 2-15 ON, DAYS 1 AND 16-21 OFF
     Route: 065
  4. SUNITINIB [Suspect]
     Active Substance: SUNITINIB
     Indication: CLEAR CELL RENAL CELL CARCINOMA

REACTIONS (13)
  - Hypoxia [None]
  - Pulmonary congestion [None]
  - Genetic polymorphism [Unknown]
  - Depressed level of consciousness [None]
  - Lipase increased [None]
  - Respiratory distress [None]
  - Hypothyroidism [None]
  - Pyrexia [None]
  - Blood alkaline phosphatase increased [None]
  - Gamma-glutamyltransferase increased [None]
  - Thrombocytopenia [None]
  - Inappropriate antidiuretic hormone secretion [None]
  - Neutropenia [None]
